FAERS Safety Report 23163550 (Version 2)
Quarter: 2023Q4

REPORT INFORMATION
  Report Type: Report from Study
  Country: BR (occurrence: BR)
  Receive Date: 20231109
  Receipt Date: 20231220
  Transmission Date: 20240109
  Serious: Yes (Life-Threatening, Other)
  Sender: FDA-Public Use
  Company Number: BR-ALXN-A202306625

PATIENT
  Age: 72 Year
  Sex: Female
  Weight: 68 kg

DRUGS (3)
  1. COVID-19 VACCINE NOS [Suspect]
     Active Substance: COVID-19 VACCINE NOS
     Indication: Paroxysmal nocturnal haemoglobinuria
     Dosage: 600 MG, QW
     Route: 042
     Dates: start: 20090304, end: 20090325
  2. SOLIRIS [Suspect]
     Active Substance: ECULIZUMAB
     Dosage: 900 MG, Q2W
     Route: 042
     Dates: start: 20090401
  3. COVID-19 VACCINE NOS [Suspect]
     Active Substance: COVID-19 VACCINE NOS
     Indication: COVID-19 immunisation
     Dosage: UNK
     Route: 065

REACTIONS (16)
  - Breakthrough COVID-19 [Unknown]
  - Coma [Recovered/Resolved]
  - Vein rupture [Unknown]
  - Syncope [Unknown]
  - Liver disorder [Not Recovered/Not Resolved]
  - Wound [Not Recovered/Not Resolved]
  - Gait disturbance [Not Recovered/Not Resolved]
  - Varicose vein [Unknown]
  - Peripheral swelling [Recovered/Resolved]
  - Skin discolouration [Recovered/Resolved]
  - Emotional distress [Not Recovered/Not Resolved]
  - Illness [Not Recovered/Not Resolved]
  - Vein discolouration [Not Recovered/Not Resolved]
  - Blood pressure decreased [Unknown]
  - Depression [Unknown]
  - Insomnia [Unknown]

NARRATIVE: CASE EVENT DATE: 20220101
